FAERS Safety Report 4333713-0 (Version None)
Quarter: 2004Q2

REPORT INFORMATION
  Report Type: 
  Country: None (occurrence: None)
  Receive Date: 20040402
  Receipt Date: 20031125
  Transmission Date: 20050107
  Serious: Yes (Death)
  Sender: FDA-Public Use
  Company Number: 2003UW14427

PATIENT
  Age: 87 Year
  Sex: Female

DRUGS (9)
  1. FASLODEX [Suspect]
     Dosage: 250 MG/ML IM
     Route: 030
     Dates: start: 20030101
  2. GLUCOTROL [Concomitant]
  3. AVANDIA [Concomitant]
  4. LIPITOR [Concomitant]
  5. ASPIRIN [Concomitant]
  6. PROTONIX [Concomitant]
  7. METOPROLOL [Concomitant]
  8. ISOSORBIDE [Concomitant]
  9. LASIX [Concomitant]

REACTIONS (2)
  - ALANINE AMINOTRANSFERASE INCREASED [None]
  - ASPARTATE AMINOTRANSFERASE INCREASED [None]
